FAERS Safety Report 5329646-3 (Version None)
Quarter: 2007Q1

REPORT INFORMATION
  Report Type: 
  Country: None (occurrence: None)
  Receive Date: 20070227
  Receipt Date: 20060724
  Transmission Date: 20070707
  Serious: No
  Sender: FDA-Public Use
  Company Number: 456552

PATIENT
  Age: 16 Year
  Sex: Male
  Weight: 56.2 kg

DRUGS (1)
  1. ACCUTANE [Suspect]
     Indication: ACNE CYSTIC
     Dosage: ORAL
     Route: 048
     Dates: start: 20020201, end: 20021115

REACTIONS (3)
  - DEPRESSION [None]
  - EPISTAXIS [None]
  - MALAISE [None]
